FAERS Safety Report 4623752-4 (Version None)
Quarter: 2005Q1

REPORT INFORMATION
  Report Type: 
  Country: None (occurrence: None)
  Receive Date: 20050331
  Receipt Date: 20050325
  Transmission Date: 20050727
  Serious: Yes (Other)
  Sender: FDA-Public Use
  Company Number: 200510919JP

PATIENT
  Age: 60 Year
  Sex: Female

DRUGS (1)
  1. TAXOTERE [Suspect]
     Route: 041

REACTIONS (1)
  - PHOTOPHOBIA [None]
